FAERS Safety Report 22208312 (Version 3)
Quarter: 2023Q2

REPORT INFORMATION
  Report Type: Report from Study
  Country: BE (occurrence: BE)
  Receive Date: 20230413
  Receipt Date: 20230426
  Transmission Date: 20230721
  Serious: Yes (Hospitalization, Disabling, Other)
  Sender: FDA-Public Use
  Company Number: BE-TAKEDA-2015BAX018072

PATIENT
  Age: 65 Year
  Sex: Male
  Weight: 66 kg

DRUGS (38)
  1. ADVATE [Suspect]
     Active Substance: ANTIHEMOPHILIC FACTOR, HUMAN RECOMBINANT
     Indication: Prophylaxis
     Dosage: UNK
     Route: 042
     Dates: start: 20110708
  2. ADVATE [Suspect]
     Active Substance: ANTIHEMOPHILIC FACTOR, HUMAN RECOMBINANT
     Indication: Prophylaxis
     Dosage: UNK
     Route: 042
     Dates: start: 20110708
  3. ADVATE [Suspect]
     Active Substance: ANTIHEMOPHILIC FACTOR, HUMAN RECOMBINANT
     Indication: Prophylaxis
     Dosage: UNK
     Route: 042
     Dates: start: 20110708
  4. ADVATE [Suspect]
     Active Substance: ANTIHEMOPHILIC FACTOR, HUMAN RECOMBINANT
     Indication: Factor VIII deficiency
     Dosage: 5000 INTERNATIONAL UNIT
     Route: 042
     Dates: start: 20130916, end: 20131023
  5. ADVATE [Suspect]
     Active Substance: ANTIHEMOPHILIC FACTOR, HUMAN RECOMBINANT
     Indication: Factor VIII deficiency
     Dosage: 5000 INTERNATIONAL UNIT
     Route: 042
     Dates: start: 20130916, end: 20131023
  6. ADVATE [Suspect]
     Active Substance: ANTIHEMOPHILIC FACTOR, HUMAN RECOMBINANT
     Indication: Factor VIII deficiency
     Dosage: 5000 INTERNATIONAL UNIT
     Route: 042
     Dates: start: 20130916, end: 20131023
  7. ADVATE [Suspect]
     Active Substance: ANTIHEMOPHILIC FACTOR, HUMAN RECOMBINANT
     Dosage: 1000 INTERNATIONAL UNIT, QD
     Route: 042
     Dates: start: 20130916, end: 20130916
  8. ADVATE [Suspect]
     Active Substance: ANTIHEMOPHILIC FACTOR, HUMAN RECOMBINANT
     Dosage: 1000 INTERNATIONAL UNIT, QD
     Route: 042
     Dates: start: 20130916, end: 20130916
  9. ADVATE [Suspect]
     Active Substance: ANTIHEMOPHILIC FACTOR, HUMAN RECOMBINANT
     Dosage: 1000 INTERNATIONAL UNIT, QD
     Route: 042
     Dates: start: 20130916, end: 20130916
  10. ADVATE [Suspect]
     Active Substance: ANTIHEMOPHILIC FACTOR, HUMAN RECOMBINANT
     Dosage: 3000 INTERNATIONAL UNIT, SINGLE
     Route: 042
     Dates: start: 20130916, end: 20130916
  11. ADVATE [Suspect]
     Active Substance: ANTIHEMOPHILIC FACTOR, HUMAN RECOMBINANT
     Dosage: 3000 INTERNATIONAL UNIT, SINGLE
     Route: 042
     Dates: start: 20130916, end: 20130916
  12. ADVATE [Suspect]
     Active Substance: ANTIHEMOPHILIC FACTOR, HUMAN RECOMBINANT
     Dosage: 3000 INTERNATIONAL UNIT, SINGLE
     Route: 042
     Dates: start: 20130916, end: 20130916
  13. ADVATE [Suspect]
     Active Substance: ANTIHEMOPHILIC FACTOR, HUMAN RECOMBINANT
     Dosage: 1000 INTERNATIONAL UNIT
     Route: 042
  14. ADVATE [Suspect]
     Active Substance: ANTIHEMOPHILIC FACTOR, HUMAN RECOMBINANT
     Dosage: 1000 INTERNATIONAL UNIT
     Route: 042
  15. ADVATE [Suspect]
     Active Substance: ANTIHEMOPHILIC FACTOR, HUMAN RECOMBINANT
     Dosage: 1000 INTERNATIONAL UNIT
     Route: 042
  16. CELEBREX [Concomitant]
     Active Substance: CELECOXIB
     Indication: Analgesic therapy
     Dosage: 200 MILLIGRAM
     Route: 065
     Dates: start: 2009
  17. DAFALGAN [Concomitant]
     Active Substance: ACETAMINOPHEN
     Indication: Analgesic therapy
     Dosage: 1000 MILLIGRAM
     Route: 065
     Dates: start: 2009
  18. BISOPROLOL FUMARATE [Concomitant]
     Active Substance: BISOPROLOL FUMARATE
     Indication: Cardiac failure
     Dosage: 2.5 MILLIGRAM, QD
     Route: 065
     Dates: start: 20100323
  19. ALIZAPRIDE HYDROCHLORIDE [Concomitant]
     Active Substance: ALIZAPRIDE HYDROCHLORIDE
     Indication: Gastrooesophageal reflux disease
     Dosage: 50 MILLIGRAM, TID
     Route: 065
     Dates: start: 20130916, end: 20130916
  20. LEVOTHYROXINE [Concomitant]
     Active Substance: LEVOTHYROXINE
     Indication: Hypothyroidism
     Dosage: 75 MICROGRAM, QD
     Route: 065
     Dates: start: 20110708
  21. MOTILIUM [Concomitant]
     Active Substance: DOMPERIDONE
     Indication: Gastrooesophageal reflux disease
     Dosage: 10 MILLIGRAM, QID
     Route: 065
     Dates: start: 20130916, end: 20130916
  22. PLAVIX [Concomitant]
     Active Substance: CLOPIDOGREL BISULFATE
     Indication: Post procedural complication
     Dosage: 75 MILLIGRAM, QD
     Route: 065
     Dates: start: 20130915, end: 20141023
  23. PLAVIX [Concomitant]
     Active Substance: CLOPIDOGREL BISULFATE
     Indication: Vascular pseudoaneurysm
  24. ASPIRIN [Concomitant]
     Active Substance: ASPIRIN
     Indication: Post procedural complication
     Dosage: 80 MILLIGRAM, QD
     Route: 065
     Dates: start: 20131115, end: 20131225
  25. PANADOL [Concomitant]
     Active Substance: ACETAMINOPHEN
     Indication: Pain prophylaxis
     Dosage: 665 MILLIGRAM, TID
     Route: 065
     Dates: start: 20130915
  26. PANADOL [Concomitant]
     Active Substance: ACETAMINOPHEN
     Indication: Vascular pseudoaneurysm
  27. Valtran [Concomitant]
     Indication: Pain prophylaxis
     Dosage: 10 GTT DROPS, QD
     Route: 065
     Dates: start: 20130915
  28. Valtran [Concomitant]
     Indication: Vascular pseudoaneurysm
  29. Daflon [Concomitant]
     Indication: Angiopathy
     Dosage: 1000 MILLIGRAM, BID
     Route: 065
     Dates: start: 20130915
  30. Daflon [Concomitant]
     Indication: Vascular pseudoaneurysm
  31. NEURONTIN [Concomitant]
     Active Substance: GABAPENTIN
     Indication: Musculoskeletal discomfort
     Dosage: 300 MILLIGRAM, QD
     Route: 065
     Dates: start: 20131002, end: 20131023
  32. TRAMADOL HYDROCHLORIDE [Concomitant]
     Active Substance: TRAMADOL HYDROCHLORIDE
     Indication: Osteopenia
     Dosage: 100 MILLIGRAM, QID
     Route: 065
     Dates: start: 20131002, end: 20131024
  33. FOLIC ACID [Concomitant]
     Active Substance: FOLIC ACID
     Indication: Folate deficiency
     Dosage: 4 MILLIGRAM, QD
     Route: 065
     Dates: start: 20131002, end: 20131023
  34. VIAGRA [Concomitant]
     Active Substance: SILDENAFIL CITRATE
     Indication: Erectile dysfunction
     Dosage: UNK
     Route: 065
     Dates: start: 20131217
  35. ESOMEPRAZOLE [Concomitant]
     Active Substance: ESOMEPRAZOLE
     Indication: Gastrooesophageal reflux disease
     Dosage: 20 MILLIGRAM, QD
     Route: 065
     Dates: start: 20131002
  36. FERROUS GLUCONATE [Concomitant]
     Active Substance: FERROUS GLUCONATE
     Indication: Iron deficiency
     Dosage: 695 MILLIGRAM, QD
     Route: 065
     Dates: start: 20131002
  37. LORMETAZEPAM [Concomitant]
     Active Substance: LORMETAZEPAM
     Indication: Iron deficiency
     Dosage: 695 MILLIGRAM, QD
     Route: 065
     Dates: start: 20131002
  38. LORMETAZEPAM [Concomitant]
     Active Substance: LORMETAZEPAM
     Indication: Insomnia
     Dosage: 2 MILLIGRAM, QD
     Route: 065

REACTIONS (2)
  - Periprosthetic osteolysis [Recovered/Resolved]
  - Osteopenia [Not Recovered/Not Resolved]

NARRATIVE: CASE EVENT DATE: 20130709
